FAERS Safety Report 9669482 (Version 3)
Quarter: 2013Q4

REPORT INFORMATION
  Report Type: Spontaneous
  Country: US (occurrence: US)
  Receive Date: 20131105
  Receipt Date: 20131114
  Transmission Date: 20140711
  Serious: Yes (Other)
  Sender: FDA-Public Use
  Company Number: US-PFIZER INC-2013309969

PATIENT
  Sex: 0

DRUGS (2)
  1. ENBREL [Suspect]
     Dosage: UNK
  2. METHOTREXATE SODIUM [Suspect]
     Dosage: UNK

REACTIONS (3)
  - Multiple sclerosis [Unknown]
  - Condition aggravated [Unknown]
  - Muscular weakness [Unknown]
